FAERS Safety Report 19443794 (Version 1)
Quarter: 2021Q2

REPORT INFORMATION
  Report Type: Spontaneous
  Country: CN (occurrence: CN)
  Receive Date: 20210621
  Receipt Date: 20210621
  Transmission Date: 20210717
  Serious: Yes (Hospitalization)
  Sender: FDA-Public Use
  Company Number: NVSC2021CN132519

PATIENT
  Age: 60 Year
  Sex: Female

DRUGS (8)
  1. ROSUVASTATIN CALCIUM. [Suspect]
     Active Substance: ROSUVASTATIN CALCIUM
     Indication: LIPIDS INCREASED
     Dosage: 10 MG, QD
     Route: 048
     Dates: start: 20210426, end: 20210511
  2. CEFTRIAXONE SODIUM. [Suspect]
     Active Substance: CEFTRIAXONE SODIUM
     Indication: PNEUMONIA
     Dosage: 2 G, QD
     Route: 041
     Dates: start: 20210509, end: 20210512
  3. CLOZAPINE. [Suspect]
     Active Substance: CLOZAPINE
     Indication: DEMENTIA
     Dosage: 50 MG, QD
     Route: 048
     Dates: start: 20210428, end: 20210503
  4. MAGNESIUM VALPROATE [Suspect]
     Active Substance: VALPROATE MAGNESIUM
     Indication: DEMENTIA
     Dosage: 0.25 G, BID
     Route: 048
     Dates: start: 20210428, end: 20210511
  5. MAGNESIUM VALPROATE [Suspect]
     Active Substance: VALPROATE MAGNESIUM
     Indication: UNEVALUABLE EVENT
  6. CLOZAPINE. [Suspect]
     Active Substance: CLOZAPINE
     Dosage: 150 MG, QD
     Route: 048
     Dates: start: 20210506, end: 20210510
  7. CLOZAPINE. [Suspect]
     Active Substance: CLOZAPINE
     Indication: UNEVALUABLE EVENT
     Dosage: 100 MG, QD
     Route: 048
     Dates: start: 20210503, end: 20210506
  8. ENDOPHY [Suspect]
     Active Substance: ACETAMINOPHEN\CHLORPHENIRAMINE MALEATE\PSEUDOEPHEDRINE HYDROCHLORIDE
     Indication: COUGH
     Dosage: 0.3 G, TID
     Route: 048
     Dates: start: 20210509, end: 20210511

REACTIONS (2)
  - Pyrexia [Recovering/Resolving]
  - Hepatic function abnormal [Recovering/Resolving]

NARRATIVE: CASE EVENT DATE: 20210510
